FAERS Safety Report 16549251 (Version 6)
Quarter: 2020Q4

REPORT INFORMATION
  Report Type: Report from Study
  Country: None (occurrence: US)
  Receive Date: 20190709
  Receipt Date: 20201229
  Transmission Date: 20210113
  Serious: Yes (Hospitalization, Other)
  Sender: FDA-Public Use
  Company Number: US-ABBVIE-19K-163-2846187-00

PATIENT
  Age: 80 Year
  Sex: Female
  Weight: 74.91 kg

DRUGS (33)
  1. COLESTIPOL [Concomitant]
     Active Substance: COLESTIPOL
     Indication: DIARRHOEA
     Route: 048
  2. CLARITIN [Concomitant]
     Active Substance: LORATADINE
     Indication: HYPERSENSITIVITY
  3. LACTOBACILLUS ACIDOPHILUS [Concomitant]
     Active Substance: LACTOBACILLUS ACIDOPHILUS
     Indication: PRODUCT USED FOR UNKNOWN INDICATION
     Route: 048
  4. LISINOPRIL. [Concomitant]
     Active Substance: LISINOPRIL
     Indication: HYPERTENSION
     Route: 048
  5. AMLODIPINE [Concomitant]
     Active Substance: AMLODIPINE BESYLATE
     Indication: HYPERTENSION
     Route: 048
  6. DIPHENHYDRAMINE. [Concomitant]
     Active Substance: DIPHENHYDRAMINE
     Indication: HYPERSENSITIVITY
     Route: 048
  7. FLUTICASONE. [Concomitant]
     Active Substance: FLUTICASONE
     Indication: HYPERSENSITIVITY
     Dosage: 50 MCG
  8. ACETAMINOPHEN. [Concomitant]
     Active Substance: ACETAMINOPHEN
     Indication: PAIN
     Route: 048
  9. ASPIRINE [Concomitant]
     Active Substance: ASPIRIN
     Indication: PRODUCT USED FOR UNKNOWN INDICATION
     Route: 048
  10. BENADRYL [Concomitant]
     Active Substance: DIPHENHYDRAMINE HYDROCHLORIDE
     Indication: HYPERSENSITIVITY
  11. PROTONIX [Concomitant]
     Active Substance: PANTOPRAZOLE SODIUM
     Indication: HIATUS HERNIA
  12. LEUCOVORIN. [Concomitant]
     Active Substance: LEUCOVORIN
     Indication: RHEUMATOID ARTHRITIS
     Route: 048
  13. PANTOPRAZOLE [Concomitant]
     Active Substance: PANTOPRAZOLE
     Indication: HIATUS HERNIA
     Route: 048
  14. HYDROCODONE BITARTRATE AND ACETAMINOPHEN [Concomitant]
     Active Substance: ACETAMINOPHEN\HYDROCODONE BITARTRATE
     Indication: PAIN
     Route: 048
  15. SUCRALFATE. [Concomitant]
     Active Substance: SUCRALFATE
     Indication: HIATUS HERNIA
  16. FLONASE [Concomitant]
     Active Substance: FLUTICASONE PROPIONATE
     Indication: HYPERSENSITIVITY
  17. HUMIRA [Suspect]
     Active Substance: ADALIMUMAB
     Route: 058
     Dates: end: 2018
  18. METHOTREXATE. [Concomitant]
     Active Substance: METHOTREXATE
     Indication: RHEUMATOID ARTHRITIS
  19. HUMIRA [Suspect]
     Active Substance: ADALIMUMAB
     Indication: RHEUMATOID ARTHRITIS
     Route: 058
     Dates: start: 2005
  20. LORATADINE. [Concomitant]
     Active Substance: LORATADINE
     Indication: HYPERSENSITIVITY
     Route: 048
  21. PRAVASTATIN. [Concomitant]
     Active Substance: PRAVASTATIN
     Indication: BLOOD CHOLESTEROL INCREASED
     Route: 048
  22. BUMETANIDE. [Concomitant]
     Active Substance: BUMETANIDE
     Indication: SWELLING
  23. CARVEDILOL. [Concomitant]
     Active Substance: CARVEDILOL
     Indication: HYPERTENSION
     Route: 048
  24. COLESTIPOL [Concomitant]
     Active Substance: COLESTIPOL
     Indication: HIATUS HERNIA
  25. ELIQUIS [Suspect]
     Active Substance: APIXABAN
     Indication: ATRIAL FIBRILLATION
     Route: 065
     Dates: start: 201812
  26. LORAZEPAM. [Concomitant]
     Active Substance: LORAZEPAM
     Indication: ANXIETY
     Route: 048
  27. ONDANSETRON [Concomitant]
     Active Substance: ONDANSETRON
     Indication: NAUSEA
     Route: 048
  28. SOTALOL. [Concomitant]
     Active Substance: SOTALOL
     Indication: ATRIAL FIBRILLATION
     Route: 048
     Dates: start: 201812
  29. DOCUSATE [Concomitant]
     Active Substance: DOCUSATE
     Indication: CONSTIPATION
     Route: 048
  30. NARCO [Concomitant]
     Indication: ARTHRALGIA
  31. HUMIRA [Suspect]
     Active Substance: ADALIMUMAB
     Route: 058
  32. PROTONIX [Concomitant]
     Active Substance: PANTOPRAZOLE SODIUM
     Indication: PRODUCT USED FOR UNKNOWN INDICATION
  33. LEUCOVORIN. [Concomitant]
     Active Substance: LEUCOVORIN
     Indication: GENERAL SYMPTOM

REACTIONS (30)
  - Atrial fibrillation [Not Recovered/Not Resolved]
  - Arterial stent insertion [Unknown]
  - Denture wearer [Unknown]
  - Gastritis erosive [Recovered/Resolved]
  - Haemoglobin decreased [Recovered/Resolved]
  - Hypersensitivity [Unknown]
  - Asthenia [Unknown]
  - Constipation [Unknown]
  - Urinary incontinence [Unknown]
  - Gastrooesophageal reflux disease [Unknown]
  - Fatigue [Recovered/Resolved]
  - Haemorrhage [Recovered/Resolved]
  - Gastrointestinal haemorrhage [Not Recovered/Not Resolved]
  - Melaena [Unknown]
  - Headache [Unknown]
  - Arthralgia [Recovered/Resolved]
  - Blood iron decreased [Recovered/Resolved]
  - Seasonal allergy [Unknown]
  - Hypercholesterolaemia [Unknown]
  - Gastrointestinal erosion [Not Recovered/Not Resolved]
  - Fatigue [Recovered/Resolved]
  - Coronary angioplasty [Unknown]
  - Cardiac pacemaker insertion [Unknown]
  - Cataract [Unknown]
  - Gastritis [Unknown]
  - Anxiety [Unknown]
  - Anal haemorrhage [Recovered/Resolved]
  - Cardiac stress test abnormal [Unknown]
  - Anal incontinence [Unknown]
  - Haemoglobin decreased [Recovered/Resolved]

NARRATIVE: CASE EVENT DATE: 2016
